FAERS Safety Report 9104105 (Version 3)
Quarter: 2014Q1

REPORT INFORMATION
  Report Type: Spontaneous
  Country: US (occurrence: US)
  Receive Date: 20130219
  Receipt Date: 20140124
  Transmission Date: 20141002
  Serious: No
  Sender: FDA-Public Use
  Company Number: US-PFIZER INC-2013061648

PATIENT
  Age: 48 Year
  Sex: Female
  Weight: 68.93 kg

DRUGS (9)
  1. LYRICA [Suspect]
     Indication: FIBROMYALGIA
     Dosage: 150 MG, 2X/DAY
     Dates: start: 201002
  2. DIFLUCAN [Suspect]
     Indication: FUNGAL INFECTION
     Dosage: 200 MG, AS NEEDED
     Dates: start: 201102
  3. SOMA [Concomitant]
     Dosage: 350 MG, UNK
  4. LORTAB [Concomitant]
     Dosage: 10/500 MG, UNK
  5. ZOLPIDEM [Concomitant]
     Dosage: UNK
  6. BACLOFEN [Concomitant]
     Dosage: UNK
  7. NORCO [Concomitant]
     Dosage: UNK
  8. FEXOFENADINE [Concomitant]
     Dosage: UNK
  9. FLUTICASONE [Concomitant]
     Dosage: UNK

REACTIONS (2)
  - Sinus disorder [Recovering/Resolving]
  - Sinus congestion [Recovering/Resolving]
